FAERS Safety Report 20965221 (Version 1)
Quarter: 2022Q2

REPORT INFORMATION
  Report Type: Spontaneous
  Country: None (occurrence: CN)
  Receive Date: 20220616
  Receipt Date: 20220616
  Transmission Date: 20220721
  Serious: Yes (Death, Other)
  Sender: FDA-Public Use
  Company Number: CN-Hisun Pharmaceuticals-2129954

PATIENT
  Age: 20 Year
  Sex: Male

DRUGS (5)
  1. CLADRIBINE [Suspect]
     Active Substance: CLADRIBINE
     Indication: Mastocytic leukaemia
  2. CYTARABINE [Suspect]
     Active Substance: CYTARABINE
  3. DASATINIB [Concomitant]
     Active Substance: DASATINIB
  4. RUXOLITINIB [Concomitant]
     Active Substance: RUXOLITINIB
  5. DEXAMETHASONE [Concomitant]
     Active Substance: DEXAMETHASONE

REACTIONS (1)
  - Acute respiratory distress syndrome [Fatal]
